FAERS Safety Report 8561635-8 (Version None)
Quarter: 2012Q3

REPORT INFORMATION
  Report Type: 
  Country: None (occurrence: None)
  Receive Date: 20120727
  Receipt Date: 20120727
  Transmission Date: 20120928
  Serious: Yes (Other)
  Sender: FDA-Public Use
  Company Number: None

PATIENT
  Age: 57 Year
  Sex: Male
  Weight: 136.0791 kg

DRUGS (1)
  1. TESTIM [Suspect]

REACTIONS (1)
  - INCORRECT PRODUCT STORAGE [None]
